FAERS Safety Report 7202801-3 (Version None)
Quarter: 2010Q4

REPORT INFORMATION
  Report Type: 
  Country: None (occurrence: None)
  Receive Date: 20101216
  Receipt Date: 20101213
  Transmission Date: 20110411
  Serious: Yes (Hospitalization)
  Sender: FDA-Public Use
  Company Number: 2010SP064314

PATIENT

DRUGS (2)
  1. PEG-INTRON [Suspect]
     Indication: PRODUCT USED FOR UNKNOWN INDICATION
     Dosage: 100 MCG; QW; SC
     Route: 058
     Dates: start: 20100801
  2. REBETOL [Suspect]
     Indication: PRODUCT USED FOR UNKNOWN INDICATION
     Dosage: QD, PO
     Route: 048
     Dates: start: 20100801

REACTIONS (3)
  - ABSCESS [None]
  - APPENDICITIS [None]
  - PYREXIA [None]
